FAERS Safety Report 8792515 (Version 1)
Quarter: 2012Q4

REPORT INFORMATION
  Report Type: 
  Country: US (occurrence: US)
  Receive Date: 20120918
  Receipt Date: 20120918
  Transmission Date: 20130627
  Serious: Yes (Death)
  Sender: FDA-Public Use
  Company Number: US-JNJFOC-20120906265

PATIENT
  Age: 68 Year
  Sex: Female

DRUGS (2)
  1. STELARA [Suspect]
     Indication: PRODUCT USED FOR UNKNOWN INDICATION
     Route: 058
  2. COUMADIN [Concomitant]
     Indication: COAGULOPATHY
     Route: 065

REACTIONS (1)
  - Pulmonary embolism [Fatal]
